FAERS Safety Report 12046732 (Version 2)
Quarter: 2016Q1

REPORT INFORMATION
  Report Type: Spontaneous
  Country: BR (occurrence: BR)
  Receive Date: 20160209
  Receipt Date: 20160317
  Transmission Date: 20160526
  Serious: Yes (Other)
  Sender: FDA-Public Use
  Company Number: BR-PFIZER INC-2016065849

PATIENT
  Age: 15 Year
  Sex: Female
  Weight: 55 kg

DRUGS (1)
  1. EFFEXOR XR [Suspect]
     Active Substance: VENLAFAXINE HYDROCHLORIDE
     Indication: DEPRESSION
     Dosage: 150 MG, 1X/DAY
     Route: 048
     Dates: start: 20150202, end: 20160202

REACTIONS (9)
  - Catatonia [Unknown]
  - Product use issue [Unknown]
  - Fear [Unknown]
  - Bipolar disorder [Unknown]
  - Corneal reflex decreased [Unknown]
  - Irritability [Unknown]
  - Social avoidant behaviour [Unknown]
  - Ocular hyperaemia [Unknown]
  - Depressed mood [Unknown]

NARRATIVE: CASE EVENT DATE: 20150202
